FAERS Safety Report 11370760 (Version 9)
Quarter: 2018Q4

REPORT INFORMATION
  Report Type: Spontaneous
  Country: US (occurrence: US)
  Receive Date: 20150812
  Receipt Date: 20181226
  Transmission Date: 20190204
  Serious: Yes (Hospitalization)
  Sender: FDA-Public Use
  Company Number: US-PFIZER INC-2015264952

PATIENT
  Age: 69 Year
  Sex: Female

DRUGS (8)
  1. LYRICA [Suspect]
     Active Substance: PREGABALIN
     Indication: MYOSITIS
     Dosage: 100 MG, 2X/DAY
     Route: 048
  2. DULOXETINE DR [Concomitant]
     Active Substance: DULOXETINE
     Dosage: 60 MG, 1X/DAY (1 @ BREAKFAST )
  3. LYRICA [Suspect]
     Active Substance: PREGABALIN
     Indication: RHEUMATIC DISORDER
     Dosage: 100 MG (TWO CAPSULES OF 50 MG), 2X/DAY
     Route: 048
  4. RESTASIS [Concomitant]
     Active Substance: CYCLOSPORINE
     Dosage: 1 DROP BOTH EYES AFTER BREAKFAST AND AT BEDTIME
     Route: 047
  5. SYMBICORT [Concomitant]
     Active Substance: BUDESONIDE\FORMOTEROL FUMARATE DIHYDRATE
     Dosage: 04/05/60; 2 PUFFS TWICE A DAY; MORNING AND BEDTIME
  6. LYRICA [Suspect]
     Active Substance: PREGABALIN
     Indication: FIBROMYALGIA
     Dosage: 100 MG (TWO CAPSULES OF 50 MG), 2X/DAY
     Route: 048
     Dates: end: 20150412
  7. CLONAZEPAM. [Concomitant]
     Active Substance: CLONAZEPAM
     Dosage: 0.25 MG, 1X/DAY (1 @BEDTIME)
  8. PRAVASTATIN. [Concomitant]
     Active Substance: PRAVASTATIN
     Dosage: 40 MG, ALTERNATE DAY (1 @ BREAKFAST; EVERY OTHER DAY)

REACTIONS (2)
  - Intervertebral disc protrusion [Recovered/Resolved]
  - Pain [Unknown]
